APPROVED DRUG PRODUCT: FLUOCINOLONE ACETONIDE
Active Ingredient: FLUOCINOLONE ACETONIDE
Strength: 0.01%
Dosage Form/Route: SOLUTION;TOPICAL
Application: A040059 | Product #001
Applicant: BAUSCH AND LOMB PHARMACEUTICALS INC
Approved: Dec 20, 1993 | RLD: No | RS: No | Type: DISCN